FAERS Safety Report 7221390-0 (Version None)
Quarter: 2011Q1

REPORT INFORMATION
  Report Type: 
  Country: None (occurrence: None)
  Receive Date: 20110112
  Receipt Date: 20110102
  Transmission Date: 20110831
  Serious: Yes (Hospitalization)
  Sender: FDA-Public Use
  Company Number: IL-MEDIMMUNE-MEDI-0012155

PATIENT
  Age: 15 Month
  Sex: Male

DRUGS (1)
  1. SYNAGIS [Suspect]
     Route: 030
     Dates: start: 20101101, end: 20101101

REACTIONS (3)
  - DYSPNOEA [None]
  - RESPIRATORY SYNCYTIAL VIRUS TEST POSITIVE [None]
  - INFLUENZA [None]
